FAERS Safety Report 24887947 (Version 1)
Quarter: 2025Q1

REPORT INFORMATION
  Report Type: Spontaneous
  Country: US (occurrence: None)
  Receive Date: 20250127
  Receipt Date: 20250127
  Transmission Date: 20250408
  Serious: Yes (Hospitalization, Other)
  Sender: UNICHEM
  Company Number: US-Unichem Pharmaceuticals (USA) Inc-UCM202501-000070

PATIENT
  Sex: Female

DRUGS (2)
  1. RANOLAZINE [Suspect]
     Active Substance: RANOLAZINE
     Indication: Angina pectoris
  2. RANOLAZINE [Suspect]
     Active Substance: RANOLAZINE

REACTIONS (2)
  - Epilepsy [Recovered/Resolved]
  - Toxicity to various agents [Unknown]
